FAERS Safety Report 8904677 (Version 1)
Quarter: 2012Q4

REPORT INFORMATION
  Report Type: 
  Country: US (occurrence: US)
  Receive Date: 20121113
  Receipt Date: 20121113
  Transmission Date: 20130627
  Serious: No
  Sender: FDA-Public Use
  Company Number: US-GLAXOSMITHKLINE-A0960236A

PATIENT
  Age: 72 Year
  Sex: Female

DRUGS (9)
  1. CARVEDILOL [Suspect]
     Indication: HYPERTENSION
     Dosage: 3.125MG Per day
     Route: 048
     Dates: end: 201110
  2. OMEPRAZOLE [Concomitant]
  3. LISINOPRIL [Concomitant]
  4. PREDNISONE [Concomitant]
  5. AMLODIPINE [Concomitant]
  6. LEVOTHYROXINE [Concomitant]
  7. HCTZ [Concomitant]
  8. MULTIVITAMIN [Concomitant]
  9. VITAMIN B 12 [Concomitant]

REACTIONS (1)
  - Alopecia [Not Recovered/Not Resolved]
